FAERS Safety Report 22257700 (Version 2)
Quarter: 2025Q1

REPORT INFORMATION
  Report Type: Spontaneous
  Country: CA (occurrence: CA)
  Receive Date: 20230427
  Receipt Date: 20250208
  Transmission Date: 20250408
  Serious: Yes (Hospitalization)
  Sender: AUROBINDO
  Company Number: CA-AUROBINDO-AUR-APL-2023-032139

PATIENT
  Age: 52 Year
  Sex: Male

DRUGS (10)
  1. LAMOTRIGINE [Suspect]
     Active Substance: LAMOTRIGINE
     Indication: Major depression
     Dosage: 200 MILLIGRAM, ONCE A DAY
     Route: 065
  2. CITALOPRAM [Suspect]
     Active Substance: CITALOPRAM
     Indication: Major depression
     Dosage: 80 MILLIGRAM, ONCE A DAY
     Route: 065
  3. CITALOPRAM [Suspect]
     Active Substance: CITALOPRAM
     Dosage: 20 MILLIGRAM, ONCE A DAY
     Route: 065
  4. QUETIAPINE [Suspect]
     Active Substance: QUETIAPINE
     Indication: Insomnia
     Route: 065
  5. CLONAZEPAM [Suspect]
     Active Substance: CLONAZEPAM
     Indication: Major depression
     Dosage: 2.5 MILLIGRAM, ONCE A DAY
     Route: 065
  6. RISPERIDONE [Suspect]
     Active Substance: RISPERIDONE
     Indication: Major depression
     Dosage: 2.0 MILLIGRAM, ONCE A DAY
     Route: 065
  7. VALPROIC ACID [Suspect]
     Active Substance: VALPROIC ACID
     Indication: Major depression
     Dosage: 750 MILLIGRAM, ONCE A DAY
     Route: 065
  8. ZOPICLONE [Suspect]
     Active Substance: ZOPICLONE
     Indication: Major depression
     Dosage: 7.5 MILLIGRAM, ONCE A DAY
     Route: 065
  9. DANTROLENE [Concomitant]
     Active Substance: DANTROLENE
     Indication: Product used for unknown indication
     Route: 065
  10. DANTROLENE [Concomitant]
     Active Substance: DANTROLENE
     Route: 065

REACTIONS (4)
  - Persistent depressive disorder [Recovered/Resolved]
  - Intentional product misuse [Recovered/Resolved]
  - Drug ineffective [Recovered/Resolved]
  - Abnormal behaviour [Recovered/Resolved]
